FAERS Safety Report 5403388-8 (Version None)
Quarter: 2007Q3

REPORT INFORMATION
  Report Type: 
  Country: None (occurrence: None)
  Receive Date: 20070718
  Receipt Date: 20060901
  Transmission Date: 20080115
  Serious: Yes (Hospitalization, Other)
  Sender: FDA-Public Use
  Company Number: 2006114836

PATIENT
  Age: 59 Year
  Sex: Male
  Weight: 86.1834 kg

DRUGS (1)
  1. CELEBREX [Suspect]

REACTIONS (4)
  - ANXIETY [None]
  - ATRIOVENTRICULAR BLOCK [None]
  - CARDIAC FAILURE [None]
  - DEPRESSION [None]
